FAERS Safety Report 18745688 (Version 1)
Quarter: 2021Q1

REPORT INFORMATION
  Report Type: Other
  Country: US (occurrence: US)
  Receive Date: 20210115
  Receipt Date: 20210115
  Transmission Date: 20210419
  Serious: Yes (Other)
  Sender: FDA-Public Use
  Company Number: US-ROCHE-2749723

PATIENT
  Age: 72 Year
  Sex: Male

DRUGS (8)
  1. PIPERACILLIN AND TAZOBACTAM [Concomitant]
     Active Substance: PIPERACILLIN SODIUM\TAZOBACTAM SODIUM
  2. REMDESIVIR. [Concomitant]
     Active Substance: REMDESIVIR
  3. TOCILIZUMAB. [Suspect]
     Active Substance: TOCILIZUMAB
     Indication: COVID-19
     Route: 065
  4. TOCILIZUMAB. [Suspect]
     Active Substance: TOCILIZUMAB
     Indication: ACUTE RESPIRATORY FAILURE
  5. MICAFUNGIN. [Concomitant]
     Active Substance: MICAFUNGIN SODIUM
  6. CEFTRIAXONE. [Concomitant]
     Active Substance: CEFTRIAXONE
  7. VORICONAZOLE. [Concomitant]
     Active Substance: VORICONAZOLE
  8. AZITHROMYCIN ANHYDROUS. [Concomitant]
     Active Substance: AZITHROMYCIN ANHYDROUS

REACTIONS (3)
  - Bronchopulmonary aspergillosis [Recovered/Resolved]
  - Off label use [Unknown]
  - Intentional product use issue [Unknown]
